FAERS Safety Report 18432639 (Version 1)
Quarter: 2020Q4

REPORT INFORMATION
  Report Type: Spontaneous
  Country: US (occurrence: US)
  Receive Date: 20201027
  Receipt Date: 20201027
  Transmission Date: 20210114
  Serious: Yes (Other)
  Sender: FDA-Public Use
  Company Number: US-PURDUE-USA-2020-0171255

PATIENT

DRUGS (3)
  1. MORPHINE SULFATE (ANDA 206308) [Suspect]
     Active Substance: MORPHINE SULFATE
     Indication: PRODUCT USED FOR UNKNOWN INDICATION
     Route: 048
  2. OXYCODONE HYDROCHLORIDE (SIMILAR TO NDA 22-272) [Suspect]
     Active Substance: OXYCODONE HYDROCHLORIDE
     Indication: PRODUCT USED FOR UNKNOWN INDICATION
     Route: 048
  3. OXYCONTIN [Suspect]
     Active Substance: OXYCODONE HYDROCHLORIDE
     Indication: PRODUCT USED FOR UNKNOWN INDICATION
     Route: 048

REACTIONS (16)
  - Mental disorder [Unknown]
  - Fatigue [Unknown]
  - Post-traumatic stress disorder [Unknown]
  - Visual impairment [Unknown]
  - Cognitive disorder [Unknown]
  - Sepsis [Unknown]
  - Emotional distress [Unknown]
  - Product prescribing issue [Unknown]
  - Diabetes mellitus [Unknown]
  - End stage renal disease [Unknown]
  - Tremor [Unknown]
  - Gastric disorder [Unknown]
  - Sexual dysfunction [Unknown]
  - Drug dependence [Unknown]
  - Constipation [Unknown]
  - Depression [Unknown]
